FAERS Safety Report 5373579-3 (Version None)
Quarter: 2007Q2

REPORT INFORMATION
  Report Type: 
  Country: None (occurrence: None)
  Receive Date: 20070628
  Receipt Date: 20070322
  Transmission Date: 20071010
  Serious: No
  Sender: FDA-Public Use
  Company Number: US-BAUSCH-2007BL000949

PATIENT
  Age: 72 Year
  Sex: Female

DRUGS (4)
  1. ZYLET [Suspect]
     Indication: DRUG HYPERSENSITIVITY
     Route: 047
     Dates: start: 20070320, end: 20070329
  2. ZYLET [Suspect]
     Indication: EYE INFLAMMATION
     Route: 047
     Dates: start: 20070320, end: 20070329
  3. ACULAR ^ALLERGAN^ [Concomitant]
     Indication: RETINAL VASCULAR DISORDER
  4. COSOPT [Concomitant]

REACTIONS (1)
  - HEADACHE [None]
